FAERS Safety Report 5909473-6 (Version None)
Quarter: 2008Q4

REPORT INFORMATION
  Report Type: 
  Country: None (occurrence: None)
  Receive Date: 20081006
  Receipt Date: 20080926
  Transmission Date: 20090506
  Serious: Yes (Hospitalization)
  Sender: FDA-Public Use
  Company Number: FR-PFIZER INC-2008082062

PATIENT
  Age: 75 Year
  Sex: Female

DRUGS (6)
  1. CAMPTOSAR [Suspect]
     Indication: COLON CANCER
     Route: 058
     Dates: end: 20080811
  2. CETUXIMAB [Suspect]
     Indication: COLON CANCER
     Route: 042
     Dates: end: 20080811
  3. AUGMENTIN '125' [Suspect]
     Route: 042
     Dates: start: 20080816, end: 20080816
  4. LOVENOX [Concomitant]
     Route: 058
     Dates: start: 20080817
  5. ROCEPHIN [Concomitant]
     Dates: start: 20080817, end: 20080825
  6. OFLOCET [Concomitant]
     Route: 042
     Dates: start: 20080817, end: 20080825

REACTIONS (2)
  - ERYTHEMA [None]
  - RASH MACULAR [None]
